FAERS Safety Report 5483253-0 (Version None)
Quarter: 2007Q4

REPORT INFORMATION
  Report Type: 
  Country: None (occurrence: None)
  Receive Date: 20071009
  Receipt Date: 20070926
  Transmission Date: 20080405
  Serious: Yes (Hospitalization, Other)
  Sender: FDA-Public Use
  Company Number: ACO_00382_2007

PATIENT
  Age: 24 Month
  Sex: 0
  Weight: 7.7 kg

DRUGS (4)
  1. TERNELIN (TERNELIN - TIZANIDINE HYDROCHLORIDE) [Suspect]
     Indication: ACCIDENTAL EXPOSURE
     Dosage: 2 MG 1X ORAL
     Route: 048
     Dates: start: 20070907, end: 20070907
  2. LASIX [Concomitant]
  3. ALDACTONE [Concomitant]
  4. DIGOXIN [Concomitant]

REACTIONS (5)
  - ACCIDENTAL DRUG INTAKE BY CHILD [None]
  - BLOOD PRESSURE SYSTOLIC DECREASED [None]
  - DEPRESSED LEVEL OF CONSCIOUSNESS [None]
  - HEART RATE DECREASED [None]
  - WRONG DRUG ADMINISTERED [None]
